FAERS Safety Report 10531676 (Version 1)
Quarter: 2014Q4

REPORT INFORMATION
  Report Type: Report from Study
  Country: BR (occurrence: BR)
  Receive Date: 20141021
  Receipt Date: 20141021
  Transmission Date: 20150529
  Serious: Yes (Death, Other)
  Sender: FDA-Public Use
  Company Number: PHHY2014BR136577

PATIENT
  Sex: Female
  Weight: 57 kg

DRUGS (8)
  1. PREDSIM [Concomitant]
     Active Substance: PREDNISOLONE
     Indication: ARTHRITIS
     Dosage: 1 DF, DAILY
     Route: 065
     Dates: start: 2012
  2. PREBICTAL [Concomitant]
     Active Substance: PREGABALIN
     Indication: DEPRESSION
  3. METOTREXATE [Concomitant]
     Active Substance: METHOTREXATE SODIUM
     Indication: ARTHRITIS
     Dosage: 1 APPLICATION, WEEKLY
     Route: 058
     Dates: start: 2013
  4. ACLASTA [Suspect]
     Active Substance: ZOLEDRONIC ACID
     Indication: OSTEOPOROSIS
     Dosage: UNK, ONCE A YEAR
     Route: 042
     Dates: start: 201407
  5. FLANCOX [Concomitant]
     Active Substance: ETODOLAC
     Indication: ARTHRITIS
     Dosage: 1 DF, EACH 12 HOURS
     Route: 065
     Dates: start: 201208
  6. PREBICTAL [Concomitant]
     Active Substance: PREGABALIN
     Indication: PAIN
     Dosage: 2 DF, DAILY
     Route: 065
     Dates: start: 201408
  7. ARAVA [Concomitant]
     Active Substance: LEFLUNOMIDE
     Indication: ARTHRITIS
     Dosage: 1 DF, DAILY
     Route: 065
     Dates: start: 2012
  8. PANTOPRAZOLE [Concomitant]
     Active Substance: PANTOPRAZOLE SODIUM
     Indication: GASTROINTESTINAL DISORDER
     Dosage: 1 DF, DAILY
     Route: 065
     Dates: start: 2012

REACTIONS (2)
  - Bronchopneumonia [Fatal]
  - Cardiac failure [Fatal]
